FAERS Safety Report 9261224 (Version 1)
Quarter: 2013Q2

REPORT INFORMATION
  Report Type: Spontaneous
  Country: US (occurrence: US)
  Receive Date: 20130429
  Receipt Date: 20130429
  Transmission Date: 20140414
  Serious: No
  Sender: FDA-Public Use
  Company Number: US-AMGEN-USASP2012059978

PATIENT
  Sex: Female

DRUGS (4)
  1. SENSIPAR [Suspect]
     Indication: HYPERPARATHYROIDISM SECONDARY
     Dosage: 30 MG, QD
     Dates: start: 2012, end: 201209
  2. INSULIN [Concomitant]
  3. RENA-VITE [Concomitant]
  4. ANTIHYPERTENSIVES [Concomitant]
     Dosage: UNK

REACTIONS (1)
  - Muscle spasms [Recovered/Resolved]
